FAERS Safety Report 10112317 (Version 1)
Quarter: 2014Q2

REPORT INFORMATION
  Report Type: Spontaneous
  Country: US (occurrence: US)
  Receive Date: 20140425
  Receipt Date: 20140425
  Transmission Date: 20141212
  Serious: Yes (Other)
  Sender: FDA-Public Use
  Company Number: US-ELI_LILLY_AND_COMPANY-US201404000775

PATIENT
  Sex: Female

DRUGS (5)
  1. PROZAC [Suspect]
     Indication: PRODUCT USED FOR UNKNOWN INDICATION
     Dosage: UNK, UNKNOWN
     Route: 065
  2. EFEXOR [Suspect]
     Indication: PRODUCT USED FOR UNKNOWN INDICATION
     Dosage: 225 MG, UNKNOWN
     Route: 065
  3. EFEXOR [Suspect]
     Dosage: 175 MG, UNKNOWN
     Route: 065
  4. CELEBREX [Suspect]
     Indication: PRODUCT USED FOR UNKNOWN INDICATION
     Dosage: 200 MG, BID
     Route: 065
  5. CELEBREX [Suspect]
     Dosage: 200 MG, QD
     Route: 065

REACTIONS (2)
  - Hiatus hernia [Unknown]
  - Drug ineffective [Unknown]
